FAERS Safety Report 21641111 (Version 2)
Quarter: 2022Q4

REPORT INFORMATION
  Report Type: Spontaneous
  Country: US (occurrence: US)
  Receive Date: 20221125
  Receipt Date: 20221130
  Transmission Date: 20230113
  Serious: Yes (Other)
  Sender: FDA-Public Use
  Company Number: US-BRISTOL-MYERS SQUIBB COMPANY-2022-143529

PATIENT

DRUGS (1)
  1. CAMZYOS [Suspect]
     Active Substance: MAVACAMTEN
     Indication: Product used for unknown indication
     Dosage: BEGIN DATE: 2 WEEKS AGO
     Route: 065
     Dates: start: 202211

REACTIONS (3)
  - Blood pressure decreased [Unknown]
  - Head injury [Unknown]
  - Loss of consciousness [Unknown]
